FAERS Safety Report 10041201 (Version 1)
Quarter: 2014Q1

REPORT INFORMATION
  Report Type: Spontaneous
  Country: US (occurrence: US)
  Receive Date: 20140327
  Receipt Date: 20140327
  Transmission Date: 20141002
  Serious: Yes (Other)
  Sender: FDA-Public Use
  Company Number: US-PFIZER INC-2014083602

PATIENT
  Age: 46 Year
  Sex: Female
  Weight: 92.97 kg

DRUGS (11)
  1. LYRICA [Suspect]
     Indication: NERVE COMPRESSION
     Dosage: UNK, 1X/DAY
     Dates: start: 20100117, end: 20100121
  2. LYRICA [Suspect]
     Dosage: UNK, 2X/DAY
     Dates: start: 20100121, end: 2010
  3. LYRICA [Suspect]
     Dosage: UNK
  4. LYRICA [Suspect]
     Dosage: UNK, DAILY
     Dates: start: 201001, end: 2010
  5. WELLBUTRIN [Concomitant]
     Indication: SMOKING CESSATION THERAPY
     Dosage: UNK
  6. TRAZODONE [Concomitant]
     Dosage: UNK
  7. GEODON [Concomitant]
     Indication: SLEEP DISORDER
     Dosage: UNK
  8. CYMBALTA [Concomitant]
     Dosage: UNK
  9. XANAX [Concomitant]
     Dosage: UNK
  10. OXYCODONE [Concomitant]
     Dosage: UNK
  11. PREVACID [Concomitant]
     Dosage: UNK

REACTIONS (23)
  - Anaphylactic shock [Unknown]
  - Swelling [Unknown]
  - Heart rate decreased [Unknown]
  - Dysuria [Unknown]
  - Delirium [Unknown]
  - Renal impairment [Unknown]
  - Aphonia [Unknown]
  - Influenza like illness [Unknown]
  - Nasopharyngitis [Unknown]
  - Thinking abnormal [Unknown]
  - Urinary incontinence [Unknown]
  - Decreased appetite [Unknown]
  - Pain [Unknown]
  - Blood glucose abnormal [Unknown]
  - Musculoskeletal discomfort [Unknown]
  - Vision blurred [Unknown]
  - Somnolence [Unknown]
  - Impaired driving ability [Unknown]
  - Bone pain [Unknown]
  - Myalgia [Unknown]
  - Malaise [Unknown]
  - Feeling abnormal [Unknown]
  - Chills [Unknown]
